FAERS Safety Report 21031550 (Version 1)
Quarter: 2022Q3

REPORT INFORMATION
  Report Type: Spontaneous
  Country: US (occurrence: None)
  Receive Date: 20220701
  Receipt Date: 20220701
  Transmission Date: 20221026
  Serious: No
  Sender: FDA-Public Use
  Company Number: US-ROCHE-2960207

PATIENT

DRUGS (2)
  1. ACTEMRA [Suspect]
     Active Substance: TOCILIZUMAB
     Indication: Giant cell arteritis
     Dosage: UNKNOWN
     Route: 065
  2. PREDNISONE [Concomitant]
     Active Substance: PREDNISONE

REACTIONS (9)
  - Fatigue [Unknown]
  - Headache [Unknown]
  - Upper respiratory tract infection [Unknown]
  - Cough [Unknown]
  - Rhinorrhoea [Unknown]
  - Nasal discharge discolouration [Unknown]
  - Arthralgia [Unknown]
  - Rhinorrhoea [Unknown]
  - Sinusitis [Unknown]
